FAERS Safety Report 19055112 (Version 1)
Quarter: 2021Q1

REPORT INFORMATION
  Report Type: Spontaneous
  Country: US (occurrence: US)
  Receive Date: 20210324
  Receipt Date: 20210324
  Transmission Date: 20210420
  Serious: No
  Sender: FDA-Public Use
  Company Number: None

PATIENT
  Age: 72 Year
  Sex: Female
  Weight: 68.04 kg

DRUGS (1)
  1. ORENCIA [Suspect]
     Active Substance: ABATACEPT
     Indication: RHEUMATOID ARTHRITIS
     Dosage: INFUSE 750MG INTRAVENOUSLY OVER 1 HOUR AT WEEKS 0, 2, AND  4 AS DIRECTED
     Route: 042
     Dates: start: 202011

REACTIONS (1)
  - Urinary tract infection [None]
